FAERS Safety Report 23812735 (Version 1)
Quarter: 2024Q2

REPORT INFORMATION
  Report Type: Spontaneous
  Country: CA (occurrence: CA)
  Receive Date: 20240503
  Receipt Date: 20240503
  Transmission Date: 20240716
  Serious: Yes (Other)
  Sender: FDA-Public Use
  Company Number: CA-TEVA-VS-3191535

PATIENT
  Age: 53 Year
  Sex: Female

DRUGS (2)
  1. DOXORUBICIN [Suspect]
     Active Substance: DOXORUBICIN
     Indication: Breast cancer
     Route: 065
  2. TAXOL [Suspect]
     Active Substance: PACLITAXEL
     Indication: Product used for unknown indication
     Dosage: DOSE FORM :SOLUTION INTRAVENOUS
     Route: 042

REACTIONS (5)
  - Cognitive disorder [Recovering/Resolving]
  - Disturbance in attention [Recovering/Resolving]
  - Impaired work ability [Recovering/Resolving]
  - Loss of personal independence in daily activities [Recovering/Resolving]
  - Memory impairment [Recovering/Resolving]
